FAERS Safety Report 22136928 (Version 8)
Quarter: 2024Q1

REPORT INFORMATION
  Report Type: Report from Study
  Country: US (occurrence: US)
  Receive Date: 20230324
  Receipt Date: 20240323
  Transmission Date: 20240409
  Serious: Yes (Hospitalization)
  Sender: FDA-Public Use
  Company Number: US-JAZZ PHARMACEUTICALS-2022-US-018872

PATIENT
  Age: 58 Year
  Sex: Female

DRUGS (14)
  1. XYWAV [Suspect]
     Active Substance: CALCIUM OXYBATE\MAGNESIUM OXYBATE\POTASSIUM OXYBATE\SODIUM OXYBATE
     Indication: Hypersomnia
     Dosage: 3.75 GRAM, BID
     Route: 048
     Dates: start: 202203
  2. XYWAV [Suspect]
     Active Substance: CALCIUM OXYBATE\MAGNESIUM OXYBATE\POTASSIUM OXYBATE\SODIUM OXYBATE
     Dosage: UNK
  3. XYWAV [Suspect]
     Active Substance: CALCIUM OXYBATE\MAGNESIUM OXYBATE\POTASSIUM OXYBATE\SODIUM OXYBATE
     Dosage: UNK
  4. XYWAV [Suspect]
     Active Substance: CALCIUM OXYBATE\MAGNESIUM OXYBATE\POTASSIUM OXYBATE\SODIUM OXYBATE
     Dosage: 3.75 GRAMS TO 4 GRAMS
  5. ELIQUIS [Concomitant]
     Active Substance: APIXABAN
     Dosage: UNK
     Dates: start: 20230322
  6. PROVENTIL HFA [SALBUTAMOL] [Concomitant]
  7. TOPIRAMATE [Concomitant]
     Active Substance: TOPIRAMATE
  8. SUMATRIPTAN SUCCINATE [Concomitant]
     Active Substance: SUMATRIPTAN SUCCINATE
  9. ANASTROZOLE [Concomitant]
     Active Substance: ANASTROZOLE
  10. AZELASTINE [Concomitant]
     Active Substance: AZELASTINE\AZELASTINE HYDROCHLORIDE
  11. UNITHROID [Concomitant]
     Active Substance: LEVOTHYROXINE SODIUM
  12. BACLOFEN [Concomitant]
     Active Substance: BACLOFEN
  13. ESZOPICLONE [Concomitant]
     Active Substance: ESZOPICLONE
  14. FLUOXETINE [Concomitant]
     Active Substance: FLUOXETINE HYDROCHLORIDE

REACTIONS (9)
  - Hospitalisation [Unknown]
  - Road traffic accident [Unknown]
  - Sneezing [Unknown]
  - Somnolence [Unknown]
  - Osteopenia [Unknown]
  - Illness [Unknown]
  - Product dose omission issue [Unknown]
  - Intentional product use issue [Unknown]
  - Intentional dose omission [Unknown]

NARRATIVE: CASE EVENT DATE: 20240201
